APPROVED DRUG PRODUCT: METRONIDAZOLE
Active Ingredient: METRONIDAZOLE
Strength: 500MG/100ML
Dosage Form/Route: INJECTABLE;INJECTION
Application: A070042 | Product #001
Applicant: WATSON LABORATORIES INC
Approved: Dec 20, 1984 | RLD: No | RS: No | Type: DISCN